FAERS Safety Report 17561190 (Version 2)
Quarter: 2020Q1

REPORT INFORMATION
  Report Type: Report from Study
  Country: US (occurrence: US)
  Receive Date: 20200319
  Receipt Date: 20200319
  Transmission Date: 20200409
  Serious: Yes (Hospitalization)
  Sender: FDA-Public Use
  Company Number: US-JNJFOC-20200313087

PATIENT
  Age: 74 Year
  Sex: Female

DRUGS (1)
  1. STELARA [Suspect]
     Active Substance: USTEKINUMAB
     Indication: CROHN^S DISEASE
     Route: 058
     Dates: start: 20190918

REACTIONS (4)
  - Diverticulitis [Unknown]
  - Fall [Unknown]
  - Vaginal fistula [Unknown]
  - Head injury [Unknown]

NARRATIVE: CASE EVENT DATE: 202002
